FAERS Safety Report 10077465 (Version 1)
Quarter: 2014Q2

REPORT INFORMATION
  Report Type: Spontaneous
  Country: TR (occurrence: None)
  Receive Date: 20140411
  Receipt Date: 20140411
  Transmission Date: 20141212
  Serious: Yes (Other)
  Sender: FDA-Public Use
  Company Number: 2014040024

PATIENT
  Age: 19 Year
  Sex: Female

DRUGS (1)
  1. ALLEGODIL AUGENTROPFEN [Suspect]
     Route: 031
     Dates: start: 20140204, end: 20140204

REACTIONS (2)
  - Respiratory distress [None]
  - Laryngeal oedema [None]
